FAERS Safety Report 10697546 (Version 1)
Quarter: 2015Q1

REPORT INFORMATION
  Report Type: Spontaneous
  Country: TW (occurrence: TW)
  Receive Date: 20150108
  Receipt Date: 20150108
  Transmission Date: 20150721
  Serious: Yes (Death, Hospitalization)
  Sender: FDA-Public Use
  Company Number: TW-PFIZER INC-2015003790

PATIENT
  Age: 52 Year
  Sex: Female

DRUGS (1)
  1. CAMPTO [Suspect]
     Active Substance: IRINOTECAN
     Indication: COLON CANCER
     Dosage: 130 MG/M2, UNK
     Route: 042
     Dates: start: 20121206, end: 20141008

REACTIONS (2)
  - Septic shock [Fatal]
  - Azotaemia [Unknown]

NARRATIVE: CASE EVENT DATE: 20141121
